FAERS Safety Report 4385797-1 (Version None)
Quarter: 2004Q2

REPORT INFORMATION
  Report Type: 
  Country: None (occurrence: None)
  Receive Date: 20040623
  Receipt Date: 20040615
  Transmission Date: 20050107
  Serious: Yes (Hospitalization, Other)
  Sender: FDA-Public Use
  Company Number: HQWYE461115JUN04

PATIENT
  Age: 3 Year
  Sex: Male

DRUGS (3)
  1. CHILDREN'S ADVIL [Suspect]
     Indication: PYREXIA
     Dosage: 2 DOSES
     Route: 048
     Dates: start: 20040430, end: 20040430
  2. CHILDREN'S ADVIL [Suspect]
     Indication: VARICELLA
     Dosage: 2 DOSES
     Route: 048
     Dates: start: 20040430, end: 20040430
  3. ACETAMINOPHEN [Concomitant]

REACTIONS (10)
  - ARTHRALGIA [None]
  - ARTHRITIS [None]
  - BETA HAEMOLYTIC STREPTOCOCCAL INFECTION [None]
  - CHILLS [None]
  - CONDITION AGGRAVATED [None]
  - FATIGUE [None]
  - LIVEDO RETICULARIS [None]
  - MEDICATION ERROR [None]
  - PYREXIA [None]
  - SEPSIS [None]
